FAERS Safety Report 9946711 (Version 1)
Quarter: 2014Q1

REPORT INFORMATION
  Report Type: Report from Study
  Country: US (occurrence: US)
  Receive Date: 20140303
  Receipt Date: 20140303
  Transmission Date: 20141002
  Serious: No
  Sender: FDA-Public Use
  Company Number: US-ABBVIE-13P-163-1062934-00

PATIENT
  Age: 22 Year
  Sex: Male

DRUGS (4)
  1. HUMIRA [Suspect]
     Indication: CROHN^S DISEASE
     Dates: start: 20120912
  2. NORCO [Concomitant]
     Indication: PAIN
  3. PHENERGAN [Concomitant]
     Indication: NAUSEA
  4. ZOFRAN [Concomitant]
     Indication: NAUSEA

REACTIONS (3)
  - Injection site pain [Recovered/Resolved]
  - Nausea [Unknown]
  - Pain [Unknown]
